FAERS Safety Report 6453503-2 (Version None)
Quarter: 2009Q4

REPORT INFORMATION
  Report Type: 
  Country: None (occurrence: None)
  Receive Date: 20091117
  Receipt Date: 20091104
  Transmission Date: 20100525
  Serious: Yes (Life-Threatening, Hospitalization)
  Sender: FDA-Public Use
  Company Number: 2009AL007164

PATIENT
  Age: 60 Year
  Sex: Female

DRUGS (6)
  1. METFORMIN HCL [Suspect]
     Dosage: PO
     Route: 048
  2. RAMIPRIL [Suspect]
     Dosage: PO
     Route: 048
  3. ACETYLSALICYLIC ACID [Concomitant]
  4. LANSOPRAZOLE [Concomitant]
  5. GLICIAZIDE [Concomitant]
  6. SIMVASTATIN [Concomitant]

REACTIONS (3)
  - HAEMODIALYSIS [None]
  - LACTIC ACIDOSIS [None]
  - RENAL FAILURE ACUTE [None]
